FAERS Safety Report 17887933 (Version 2)
Quarter: 2020Q2

REPORT INFORMATION
  Report Type: Spontaneous
  Country: JP (occurrence: JP)
  Receive Date: 20200612
  Receipt Date: 20200619
  Transmission Date: 20200714
  Serious: Yes (Other)
  Sender: FDA-Public Use
  Company Number: JP-TEVA-2020-JP-003919J

PATIENT
  Age: 72 Year
  Sex: Female

DRUGS (2)
  1. TELMISARTAN TABLET 80MG [Suspect]
     Active Substance: TELMISARTAN
     Indication: HYPERTENSION
     Dosage: 30 MILLIGRAM DAILY;
     Route: 048
     Dates: end: 20200608
  2. AMLODIPINE OD TABLET 10MG ^TEVA^ [Suspect]
     Active Substance: AMLODIPINE BESYLATE
     Indication: HYPERTENSION
     Dosage: 2.5 MILLIGRAM DAILY;
     Route: 048

REACTIONS (2)
  - Renal impairment [Unknown]
  - Blood creatinine increased [Unknown]

NARRATIVE: CASE EVENT DATE: 20200608
